FAERS Safety Report 10570892 (Version 1)
Quarter: 2014Q4

REPORT INFORMATION
  Report Type: Spontaneous
  Country: US (occurrence: None)
  Receive Date: 20141106
  Receipt Date: 20141106
  Transmission Date: 20150529
  Serious: No
  Sender: FDA-Public Use
  Company Number: None

PATIENT
  Sex: Male

DRUGS (2)
  1. DIVALPROEX ACID [Suspect]
     Active Substance: DIVALPROEX SODIUM
     Indication: PREMENSTRUAL DYSPHORIC DISORDER
     Dosage: 125 MG 6 IN AM, 6 IN PM
     Route: 048
  2. DIVALPROEX ACID [Suspect]
     Active Substance: DIVALPROEX SODIUM
     Indication: ABNORMAL BEHAVIOUR
     Dosage: 125 MG 6 IN AM, 6 IN PM
     Route: 048

REACTIONS (3)
  - Balance disorder [None]
  - Tremor [None]
  - Product substitution issue [None]
